FAERS Safety Report 5374862-8 (Version None)
Quarter: 2007Q2

REPORT INFORMATION
  Report Type: 
  Country: None (occurrence: None)
  Receive Date: 20070629
  Receipt Date: 20070627
  Transmission Date: 20071010
  Serious: Yes (Life-Threatening)
  Sender: FDA-Public Use
  Company Number: B0477041A

PATIENT
  Age: 65 Year
  Sex: Female

DRUGS (1)
  1. AUGMENTIN '125' [Suspect]
     Indication: DENTAL DISORDER PROPHYLAXIS
     Dosage: 1TAB PER DAY
     Route: 048
     Dates: start: 20070612

REACTIONS (8)
  - ANAPHYLACTIC REACTION [None]
  - BLOOD PRESSURE [None]
  - DYSSTASIA [None]
  - NAUSEA [None]
  - PRESYNCOPE [None]
  - RASH GENERALISED [None]
  - SYNCOPE [None]
  - VOMITING [None]
